FAERS Safety Report 10705047 (Version 1)
Quarter: 2015Q1

REPORT INFORMATION
  Report Type: Spontaneous
  Country: US (occurrence: US)
  Receive Date: 20150112
  Receipt Date: 20150112
  Transmission Date: 20150721
  Serious: Yes (Other)
  Sender: FDA-Public Use
  Company Number: US-BAXTER-2015BAX000157

PATIENT
  Age: 65 Year
  Sex: Male

DRUGS (2)
  1. 0.9% SODIUM CHLORIDE IRRIGATION [Suspect]
     Active Substance: SODIUM CHLORIDE
     Indication: HAEMOPTYSIS
     Route: 065
  2. EPINEPHRINE. [Suspect]
     Active Substance: EPINEPHRINE
     Indication: HAEMOPTYSIS
     Dosage: 1:20,000 UNITS
     Route: 065

REACTIONS (1)
  - Drug ineffective [Not Recovered/Not Resolved]
